FAERS Safety Report 8554408-3 (Version None)
Quarter: 2012Q3

REPORT INFORMATION
  Report Type: 
  Country: None (occurrence: None)
  Receive Date: 20120731
  Receipt Date: 20120723
  Transmission Date: 20120928
  Serious: Yes (Hospitalization, Disabling, Other)
  Sender: FDA-Public Use
  Company Number: US-009507513-1207USA010623

PATIENT

DRUGS (41)
  1. LUMIGAN [Suspect]
  2. OXYCODONE HCL [Suspect]
  3. XALATAN [Suspect]
     Dosage: 200 MG, PRN
     Route: 047
  4. TOPROL-XL [Suspect]
  5. LOSARTAN POTASSIUM [Concomitant]
  6. METFORMIN HYDROCHLORIDE [Suspect]
     Dosage: 500 MG, UNK
  7. VICODIN [Suspect]
  8. GLUCOPHAGE [Suspect]
  9. THERA TEARS [Concomitant]
  10. CLOZAPINE [Suspect]
  11. FOLIC ACID [Concomitant]
  12. LUVOX [Suspect]
  13. PROZAC [Suspect]
  14. IBUPROFEN (ADVIL) [Suspect]
  15. PLAVIX [Suspect]
  16. DIGOXIN [Concomitant]
  17. BILBERRY [Concomitant]
  18. OMEGA-3 MARINE TRIGLYCERIDES [Concomitant]
  19. CODEINE [Suspect]
  20. LOTRIMIN AF [Suspect]
  21. PILOCARPINE [Concomitant]
  22. FUROSEMIDE [Concomitant]
  23. PRAVASTATIN SODIUM [Suspect]
  24. MOTRIN [Suspect]
  25. VIAGRA [Suspect]
  26. LIPITOR [Suspect]
  27. ZETIA [Suspect]
     Route: 048
  28. DIAZEPAM [Concomitant]
  29. ISTALOL [Concomitant]
  30. LANTUS [Concomitant]
  31. CYCLOSPORINE [Suspect]
  32. COREG [Suspect]
  33. ALPRAZOLAM [Suspect]
  34. ALLOPURINOL [Concomitant]
  35. POTASSIUM CHLORIDE [Concomitant]
  36. ZOCOR [Suspect]
     Route: 048
  37. METOPROLOL TARTRATE [Suspect]
     Dosage: 25 MG, BID
     Route: 048
  38. TRAMADOL HYDROCHLORIDE [Suspect]
  39. PROSCAR [Suspect]
     Route: 048
  40. REGLAN [Suspect]
  41. ASPIRIN [Concomitant]

REACTIONS (12)
  - NAUSEA [None]
  - MYALGIA [None]
  - CONSTIPATION [None]
  - BLOOD GLUCOSE INCREASED [None]
  - SLEEP DISORDER [None]
  - ASTHENIA [None]
  - VOMITING [None]
  - DYSPNOEA [None]
  - FATIGUE [None]
  - BACK PAIN [None]
  - SKIN IRRITATION [None]
  - ABASIA [None]
